FAERS Safety Report 5121389-4 (Version None)
Quarter: 2006Q4

REPORT INFORMATION
  Report Type: 
  Country: None (occurrence: None)
  Receive Date: 20061002
  Receipt Date: 20060926
  Transmission Date: 20070319
  Serious: Yes (Death)
  Sender: FDA-Public Use
  Company Number: 2006BH013611

PATIENT
  Age: 52 Year
  Sex: Female

DRUGS (6)
  1. DIANEL PD4, AMBU-FLEX CONTAINER [Suspect]
     Indication: PERITONEAL DIALYSIS
     Dosage: 15 L;EVERY DAY; IP
     Route: 033
  2. NPH INSULIN [Concomitant]
  3. EPOGEN [Concomitant]
  4. ROCALTROL [Concomitant]
  5. PHOSLO [Concomitant]
  6. NEURONTIN [Concomitant]

REACTIONS (2)
  - CARDIAC DISORDER [None]
  - TREATMENT NONCOMPLIANCE [None]
